FAERS Safety Report 4889596-3 (Version None)
Quarter: 2006Q1

REPORT INFORMATION
  Report Type: 
  Country: None (occurrence: None)
  Receive Date: 20060120
  Receipt Date: 20060106
  Transmission Date: 20060701
  Serious: Yes (Death, Hospitalization)
  Sender: FDA-Public Use
  Company Number: 2005-01923

PATIENT
  Age: 74 Year
  Sex: Male

DRUGS (7)
  1. VELCADE [Suspect]
     Indication: MULTIPLE MYELOMA
     Dosage: 1.30 MG/M2, 2/WEEK, INTRAVENOUS
     Route: 042
     Dates: start: 20050311, end: 20050905
  2. MS CONTIN [Concomitant]
  3. ENDONE          (OXYCODONE HYDROCHLORIDE) [Concomitant]
  4. ONDANSETRON [Concomitant]
  5. FUROSEMIDE [Concomitant]
  6. SLOW-K [Concomitant]
  7. FOLIC ACID [Concomitant]

REACTIONS (13)
  - ATELECTASIS [None]
  - CARDIOMEGALY [None]
  - FLUID OVERLOAD [None]
  - HAEMOTHORAX [None]
  - HYPOKINESIA [None]
  - LEFT VENTRICULAR FAILURE [None]
  - MORAXELLA INFECTION [None]
  - PLEURAL CALCIFICATION [None]
  - PLEURAL EFFUSION [None]
  - PLEURAL FIBROSIS [None]
  - PULMONARY CONGESTION [None]
  - RESPIRATORY FAILURE [None]
  - SPINAL COMPRESSION FRACTURE [None]
